FAERS Safety Report 6975868-5 (Version None)
Quarter: 2010Q3

REPORT INFORMATION
  Report Type: 
  Country: None (occurrence: None)
  Receive Date: 20100910
  Receipt Date: 20100830
  Transmission Date: 20110219
  Serious: Yes (Hospitalization)
  Sender: FDA-Public Use
  Company Number: US-ELI_LILLY_AND_COMPANY-US201009000117

PATIENT
  Sex: Female

DRUGS (4)
  1. CYMBALTA [Suspect]
     Indication: DEPRESSION
     Dosage: 30 MG, 3/D
  2. CYMBALTA [Suspect]
     Dosage: 60 MG, 3/D
     Dates: start: 20100712
  3. CYMBALTA [Suspect]
     Dosage: 60 MG, DAILY (1/D)
  4. LISINOPRIL [Concomitant]
     Dosage: 40 MG, UNK

REACTIONS (5)
  - ACCIDENTAL OVERDOSE [None]
  - BALANCE DISORDER [None]
  - FALL [None]
  - INCORRECT DOSE ADMINISTERED [None]
  - OPEN FRACTURE [None]
